FAERS Safety Report 10542099 (Version 1)
Quarter: 2014Q4

REPORT INFORMATION
  Report Type: Spontaneous
  Country: JP (occurrence: JP)
  Receive Date: 20141024
  Receipt Date: 20141024
  Transmission Date: 20150529
  Serious: Yes (Hospitalization, Other)
  Sender: FDA-Public Use
  Company Number: JP-BAUSCH-BL-2014-007423

PATIENT
  Age: 71 Year
  Sex: Female

DRUGS (3)
  1. ZOVIRAX [Suspect]
     Active Substance: ACYCLOVIR
     Indication: PRODUCT USED FOR UNKNOWN INDICATION
     Route: 041
     Dates: start: 20140930, end: 20141001
  2. ZOVIRAX [Suspect]
     Active Substance: ACYCLOVIR
     Route: 041
     Dates: start: 20141001, end: 20141003
  3. ZOVIRAX [Suspect]
     Active Substance: ACYCLOVIR
     Route: 041
     Dates: start: 20141004

REACTIONS (4)
  - Toxic encephalopathy [Not Recovered/Not Resolved]
  - Vomiting [Not Recovered/Not Resolved]
  - Nausea [Unknown]
  - Decreased appetite [Not Recovered/Not Resolved]

NARRATIVE: CASE EVENT DATE: 20141001
